FAERS Safety Report 25100230 (Version 1)
Quarter: 2025Q1

REPORT INFORMATION
  Report Type: Spontaneous
  Country: US (occurrence: None)
  Receive Date: 20250319
  Receipt Date: 20250319
  Transmission Date: 20250408
  Serious: Yes (Hospitalization, Disabling, Other)
  Sender: FDA-CTU
  Company Number: None

PATIENT
  Age: 59 Year
  Sex: Male
  Weight: 131.4 kg

DRUGS (2)
  1. ABILIFY [Suspect]
     Active Substance: ARIPIPRAZOLE
     Indication: Schizophrenia
     Route: 048
     Dates: start: 20050101, end: 20211111
  2. PROBIOTICS NOS [Concomitant]
     Active Substance: PROBIOTICS NOS

REACTIONS (7)
  - Hypersexuality [None]
  - Gambling [None]
  - Binge eating [None]
  - Compulsive shopping [None]
  - Suicidal ideation [None]
  - Impulse-control disorder [None]
  - Incest [None]

NARRATIVE: CASE EVENT DATE: 20211111
